FAERS Safety Report 5964787-9 (Version None)
Quarter: 2008Q4

REPORT INFORMATION
  Report Type: 
  Country: None (occurrence: None)
  Receive Date: 20081124
  Receipt Date: 20081124
  Transmission Date: 20090506
  Serious: Yes (Hospitalization)
  Sender: FDA-Public Use
  Company Number: None

PATIENT
  Age: 52 Year
  Sex: Male

DRUGS (1)
  1. FLOMAX [Suspect]
     Indication: BENIGN PROSTATIC HYPERPLASIA
     Dosage: ONE 0.4MG CAPSULE DAILY PO
     Route: 048
     Dates: start: 20081019, end: 20081103

REACTIONS (2)
  - HYPOAESTHESIA [None]
  - PARAESTHESIA [None]
